FAERS Safety Report 7379883-1 (Version None)
Quarter: 2011Q1

REPORT INFORMATION
  Report Type: 
  Country: None (occurrence: None)
  Receive Date: 20110329
  Receipt Date: 20110318
  Transmission Date: 20110831
  Serious: Yes (Hospitalization)
  Sender: FDA-Public Use
  Company Number: JP-JNJFOC-20110310022

PATIENT
  Age: 59 Year
  Sex: Male

DRUGS (3)
  1. CRAVIT [Suspect]
     Route: 048
     Dates: start: 20110314, end: 20110316
  2. NAFAMOSTAT [Concomitant]
     Route: 065
  3. CRAVIT [Suspect]
     Indication: PRODUCT USED FOR UNKNOWN INDICATION
     Route: 048
     Dates: start: 20110314, end: 20110316

REACTIONS (2)
  - HYPOTENSION [None]
  - EOSINOPHIL COUNT INCREASED [None]
